FAERS Safety Report 13980684 (Version 2)
Quarter: 2017Q4

REPORT INFORMATION
  Report Type: Report from Study
  Country: US (occurrence: US)
  Receive Date: 20170918
  Receipt Date: 20171029
  Transmission Date: 20180321
  Serious: No
  Sender: FDA-Public Use
  Company Number: PHEH2017US029947

PATIENT
  Sex: Male

DRUGS (1)
  1. ILARIS [Suspect]
     Active Substance: CANAKINUMAB
     Indication: PRODUCT USED FOR UNKNOWN INDICATION
     Dosage: UNK, EVERY 4 WEEKS
     Route: 065
     Dates: start: 20170726

REACTIONS (3)
  - Inappropriate schedule of drug administration [Unknown]
  - Vomiting [Unknown]
  - Pyrexia [Unknown]
